FAERS Safety Report 11623792 (Version 1)
Quarter: 2015Q4

REPORT INFORMATION
  Report Type: Spontaneous
  Country: US (occurrence: US)
  Receive Date: 20151013
  Receipt Date: 20151013
  Transmission Date: 20160304
  Serious: No
  Sender: FDA-Public Use
  Company Number: US-JNJFOC-20150118067

PATIENT
  Age: 58 Year
  Sex: Female
  Weight: 63.5 kg

DRUGS (2)
  1. TYLENOL [Suspect]
     Active Substance: ACETAMINOPHEN
     Route: 048
  2. TYLENOL [Suspect]
     Active Substance: ACETAMINOPHEN
     Indication: SINUS CONGESTION
     Route: 048

REACTIONS (1)
  - Psychomotor hyperactivity [Recovered/Resolved]
